FAERS Safety Report 18296634 (Version 2)
Quarter: 2021Q2

REPORT INFORMATION
  Report Type: Spontaneous
  Country: DE (occurrence: DE)
  Receive Date: 20200922
  Receipt Date: 20210427
  Transmission Date: 20210717
  Serious: Yes (Other)
  Sender: FDA-Public Use
  Company Number: NVSC2020DE255935

PATIENT
  Age: 75 Year
  Sex: Female

DRUGS (1)
  1. BISOHEXAL [Suspect]
     Active Substance: BISOPROLOL FUMARATE
     Indication: PRODUCT USED FOR UNKNOWN INDICATION
     Dosage: 2.5 MG
     Route: 065
     Dates: start: 20200916, end: 2020

REACTIONS (2)
  - Arrhythmia [Recovered/Resolved]
  - Brain neoplasm [Unknown]

NARRATIVE: CASE EVENT DATE: 2020
